FAERS Safety Report 8352016-0 (Version None)
Quarter: 2012Q2

REPORT INFORMATION
  Report Type: 
  Country: None (occurrence: None)
  Receive Date: 20120510
  Receipt Date: 20120510
  Transmission Date: 20120825
  Serious: Yes (Hospitalization)
  Sender: FDA-Public Use
  Company Number: None

PATIENT
  Age: 53 Year
  Sex: Male
  Weight: 133.8 kg

DRUGS (2)
  1. ASPIRIN [Suspect]
     Dosage: 81 MG EVERY DAY PO
     Route: 048
     Dates: start: 20110403, end: 20111107
  2. MELOXICAM [Suspect]
     Indication: PAIN
     Dosage: 15 MG EVERY DAY PO
     Route: 048
     Dates: start: 20110413, end: 20111107

REACTIONS (5)
  - BLOOD LACTIC ACID INCREASED [None]
  - HAEMORRHAGE [None]
  - PYREXIA [None]
  - HAEMORRHAGIC ANAEMIA [None]
  - GASTRIC ULCER HAEMORRHAGE [None]
